FAERS Safety Report 10575129 (Version 1)
Quarter: 2014Q4

REPORT INFORMATION
  Report Type: Report from Study
  Country: AU (occurrence: AU)
  Receive Date: 20141111
  Receipt Date: 20141111
  Transmission Date: 20150529
  Serious: Yes (Death, Other)
  Sender: FDA-Public Use
  Company Number: AU-ROCHE-1485847

PATIENT
  Sex: Female

DRUGS (3)
  1. VINORELBINE [Suspect]
     Active Substance: VINORELBINE\VINORELBINE TARTRATE
     Indication: HER-2 POSITIVE BREAST CANCER
     Route: 065
  2. TRASTUZUMAB [Suspect]
     Active Substance: TRASTUZUMAB
     Route: 042
  3. TRASTUZUMAB [Suspect]
     Active Substance: TRASTUZUMAB
     Indication: HER-2 POSITIVE BREAST CANCER
     Dosage: ONCE ONLY LOADING DOSE
     Route: 042

REACTIONS (18)
  - Infection [Unknown]
  - Neuropathy peripheral [Unknown]
  - Neutropenic sepsis [Fatal]
  - Anaemia [Unknown]
  - Pyrexia [Unknown]
  - Toxicity to various agents [Unknown]
  - Diarrhoea [Unknown]
  - Vomiting [Unknown]
  - Leukopenia [Unknown]
  - Febrile neutropenia [Unknown]
  - Constipation [Unknown]
  - Nausea [Unknown]
  - Chills [Unknown]
  - Neutropenia [Unknown]
  - Asthenia [Unknown]
  - Decreased appetite [Unknown]
  - Skin disorder [Unknown]
  - Ejection fraction decreased [Unknown]
